FAERS Safety Report 5212677-1 (Version None)
Quarter: 2007Q1

REPORT INFORMATION
  Report Type: 
  Country: None (occurrence: None)
  Receive Date: 20061107
  Receipt Date: 20060915
  Transmission Date: 20070707
  Serious: No
  Sender: FDA-Public Use
  Company Number: 200512227BWH

PATIENT
  Age: 68 Year
  Sex: Male

DRUGS (7)
  1. LEVITRA [Suspect]
     Indication: ERECTILE DYSFUNCTION
     Dosage: SEE IMAGE
     Route: 048
  2. FLOMAX [Concomitant]
  3. LIPITOR [Concomitant]
  4. NEXIUM [Concomitant]
  5. VITAMINS NOS [Concomitant]
  6. FISH OIL [Concomitant]
  7. GLUCOSAMINE [Concomitant]

REACTIONS (3)
  - ERECTILE DYSFUNCTION [None]
  - FATIGUE [None]
  - NO ADVERSE DRUG EFFECT [None]
